FAERS Safety Report 7301363-X (Version None)
Quarter: 2011Q1

REPORT INFORMATION
  Report Type: 
  Country: None (occurrence: None)
  Receive Date: 20110113
  Receipt Date: 20100921
  Transmission Date: 20110831
  Serious: No
  Sender: FDA-Public Use
  Company Number: US-001282

PATIENT
  Sex: Female
  Weight: 54.2 kg

DRUGS (3)
  1. KUVAN [Suspect]
     Indication: PHENYLKETONURIA
     Dosage: (15 MG/KG QD ORAL) (20 MG/KG QD ORAL)
     Route: 048
     Dates: start: 20100416, end: 20100719
  2. KUVAN [Suspect]
     Indication: PHENYLKETONURIA
     Dosage: (15 MG/KG QD ORAL) (20 MG/KG QD ORAL)
     Route: 048
     Dates: start: 20100720
  3. NUTRIENTS WITHOUT PHENYLALANINE [Concomitant]

REACTIONS (1)
  - HYPERKERATOSIS [None]
